FAERS Safety Report 21645188 (Version 1)
Quarter: 2022Q4

REPORT INFORMATION
  Report Type: Spontaneous
  Country: NL (occurrence: NL)
  Receive Date: 20221126
  Receipt Date: 20221126
  Transmission Date: 20230112
  Serious: Yes (Disabling)
  Sender: FDA-Public Use
  Company Number: None

PATIENT
  Sex: Female

DRUGS (4)
  1. DEXAMETHASONE [Suspect]
     Active Substance: DEXAMETHASONE
     Indication: Breast cancer
     Dosage: STRENGTH :  4MG / BRAND NAME NOT SPECIFIED, DAY 1: 3 PIECES, DAY 2/3/4: 2 PIECES, THERAPY END DATE :
     Route: 065
     Dates: start: 20210824
  2. EUTHYROX [Concomitant]
     Active Substance: LEVOTHYROXINE SODIUM
     Indication: Product used for unknown indication
     Dosage: 100 MCG (MICROGRAM), STRENGTH : 100UG , THERAPY START DATE : ASKU , THERAPY END DATE : ASKU
  3. DOXORUBICIN [Concomitant]
     Active Substance: DOXORUBICIN
     Indication: Product used for unknown indication
     Dosage: 130 MG, INJECTION/INFUSION / BRAND NAME NOT SPECIFIED, THERAPY START DATE : ASKU , THERAPY END DATE
  4. CYCLOPHOSPHAMIDE [Concomitant]
     Active Substance: CYCLOPHOSPHAMIDE
     Indication: Product used for unknown indication
     Dosage: 1300 MG, INJECTION/INFUSION / BRAND NAME NOT SPECIFIED, THERAPY START DATE : ASKU , THERAPY END DATE

REACTIONS (3)
  - Heart rate decreased [Not Recovered/Not Resolved]
  - Feeling abnormal [Not Recovered/Not Resolved]
  - Syncope [Not Recovered/Not Resolved]
